FAERS Safety Report 4981623-8 (Version None)
Quarter: 2006Q2

REPORT INFORMATION
  Report Type: 
  Country: None (occurrence: None)
  Receive Date: 20060425
  Receipt Date: 20060324
  Transmission Date: 20061013
  Serious: Yes (Other)
  Sender: FDA-Public Use
  Company Number: PHNR2006AU00610

PATIENT
  Age: 77 Year
  Sex: Female

DRUGS (5)
  1. AREDIA [Suspect]
     Indication: MULTIPLE MYELOMA
     Dosage: 90 MG, 6/52
     Dates: end: 20060101
  2. ZOMETA [Suspect]
     Indication: MULTIPLE MYELOMA
     Dosage: 4 MG, 15/60
     Dates: start: 20060201, end: 20060301
  3. THALIDOMIDE [Concomitant]
     Dosage: 100 MG, DAILY
     Dates: start: 20050101
  4. PREDNISOLONE [Concomitant]
     Indication: MULTIPLE MYELOMA
     Dosage: 12.5 MG, DAILY
     Dates: start: 20050101
  5. CHEMOTHERAPEUTICS,OTHER [Concomitant]

REACTIONS (4)
  - BONE DISORDER [None]
  - OSTEONECROSIS [None]
  - PAIN IN JAW [None]
  - SOFT TISSUE INFECTION [None]
